FAERS Safety Report 7322783-3 (Version None)
Quarter: 2011Q1

REPORT INFORMATION
  Report Type: 
  Country: None (occurrence: None)
  Receive Date: 20110216
  Receipt Date: 20110208
  Transmission Date: 20110831
  Serious: Yes (Death, Hospitalization)
  Sender: FDA-Public Use
  Company Number: LEO-2011-00164

PATIENT
  Age: 81 Year
  Sex: Female

DRUGS (2)
  1. INNOHEP [Suspect]
     Indication: THROMBOSIS PROPHYLAXIS
  2. PHENPROCOUMON (PHENPROCOUMON) [Suspect]
     Indication: ANTICOAGULANT THERAPY

REACTIONS (5)
  - INTERNATIONAL NORMALISED RATIO INCREASED [None]
  - PULMONARY EMBOLISM [None]
  - LEUKOSTASIS [None]
  - ACUTE MYELOID LEUKAEMIA [None]
  - MULTI-ORGAN FAILURE [None]
